FAERS Safety Report 7085675-3 (Version None)
Quarter: 2010Q4

REPORT INFORMATION
  Report Type: 
  Country: None (occurrence: None)
  Receive Date: 20101105
  Receipt Date: 20101101
  Transmission Date: 20110411
  Serious: Yes (Death, Life-Threatening, Hospitalization)
  Sender: FDA-Public Use
  Company Number: DE-PFIZER INC-2007028862

PATIENT
  Age: 55 Year
  Sex: Male
  Weight: 90 kg

DRUGS (10)
  1. SUNITINIB MALATE [Suspect]
     Indication: METASTATIC RENAL CELL CARCINOMA
     Dosage: 50 MG, 1X/DAY
     Route: 048
     Dates: start: 20060414, end: 20060511
  2. SUNITINIB MALATE [Suspect]
     Dosage: 50 MG, 1X/DAY
     Route: 048
     Dates: start: 20070316, end: 20070402
  3. OPIPRAMOL [Concomitant]
     Indication: DEPRESSION
     Dates: start: 20020101, end: 20070407
  4. LEVOTHYROXINE SODIUM [Concomitant]
     Indication: HYPOTHYROIDISM
     Dates: start: 20040101, end: 20070407
  5. DURAGESIC-100 [Concomitant]
     Indication: PAIN
     Dates: start: 20060225, end: 20060623
  6. LACTOSE [Concomitant]
     Indication: CONSTIPATION
     Dates: start: 20060501, end: 20060623
  7. DULCOLAX [Concomitant]
     Indication: CONSTIPATION
     Route: 054
     Dates: start: 20060501, end: 20060623
  8. INFLUENZA VACCINE [Concomitant]
     Indication: PROPHYLAXIS
     Dates: start: 20061102, end: 20061102
  9. PNEUMOCOCCAL VACCINE [Concomitant]
     Indication: PROPHYLAXIS
     Dates: start: 20061102, end: 20061102
  10. AVELOX [Concomitant]
     Route: 048
     Dates: start: 20070325, end: 20070402

REACTIONS (3)
  - CARDIAC FAILURE [None]
  - HEPATIC FAILURE [None]
  - RENAL FAILURE [None]
